FAERS Safety Report 17155055 (Version 11)
Quarter: 2021Q1

REPORT INFORMATION
  Report Type: Report from Study
  Country: CA (occurrence: CA)
  Receive Date: 20191214
  Receipt Date: 20210323
  Transmission Date: 20210419
  Serious: Yes (Hospitalization, Other)
  Sender: FDA-Public Use
  Company Number: CA-TAKEDA-2019TUS069406

PATIENT
  Age: 60 Year
  Sex: Male

DRUGS (4)
  1. FENTANYL. [Concomitant]
     Active Substance: FENTANYL
     Dosage: UNK
  2. VEDOLIZUMAB [Suspect]
     Active Substance: VEDOLIZUMAB
     Indication: CROHN^S DISEASE
     Dosage: 300 MILLIGRAM
     Route: 042
     Dates: start: 20190430
  3. VEDOLIZUMAB [Suspect]
     Active Substance: VEDOLIZUMAB
     Dosage: 300 MILLIGRAM, Q4WEEKS
     Route: 042
     Dates: start: 20210310
  4. VEDOLIZUMAB [Suspect]
     Active Substance: VEDOLIZUMAB
     Dosage: 300 MILLIGRAM
     Route: 042
     Dates: start: 20200903

REACTIONS (8)
  - Gastrointestinal lymphoma [Unknown]
  - Chronic obstructive pulmonary disease [Unknown]
  - Intestinal perforation [Unknown]
  - Gastrointestinal ulcer [Unknown]
  - Product dose omission issue [Unknown]
  - Post transplant lymphoproliferative disorder [Unknown]
  - Post procedural complication [Recovering/Resolving]
  - Off label use [Unknown]

NARRATIVE: CASE EVENT DATE: 20210310
